FAERS Safety Report 9552823 (Version 2)
Quarter: 2013Q4

REPORT INFORMATION
  Report Type: Spontaneous
  Country: US (occurrence: US)
  Receive Date: 20130925
  Receipt Date: 20131101
  Transmission Date: 20140711
  Serious: Yes (Other)
  Sender: FDA-Public Use
  Company Number: US-PFIZER INC-2013272668

PATIENT
  Age: 46 Year
  Sex: Male
  Weight: 77.1 kg

DRUGS (1)
  1. VIAGRA [Suspect]
     Indication: LIBIDO DECREASED
     Dosage: UNK, AS NEEDED
     Dates: start: 1999

REACTIONS (2)
  - Type 2 diabetes mellitus [Unknown]
  - Nasal congestion [Unknown]
